FAERS Safety Report 14585679 (Version 1)
Quarter: 2018Q1

REPORT INFORMATION
  Report Type: Spontaneous
  Country: US (occurrence: US)
  Receive Date: 20180301
  Receipt Date: 20180301
  Transmission Date: 20180509
  Serious: No
  Sender: FDA-Public Use
  Company Number: US-BRISTOL-MYERS SQUIBB COMPANY-BMS-2018-018040

PATIENT
  Age: 61 Year
  Sex: Female
  Weight: 78.92 kg

DRUGS (2)
  1. SPRYCEL [Suspect]
     Active Substance: DASATINIB
     Indication: PRODUCT USED FOR UNKNOWN INDICATION
     Dosage: 100 MG, DAILY
     Route: 048
     Dates: start: 201801
  2. SPRYCEL [Suspect]
     Active Substance: DASATINIB
     Indication: PRODUCT USED FOR UNKNOWN INDICATION
     Dosage: 100 MG, DAILY
     Route: 048
     Dates: start: 201802

REACTIONS (5)
  - Cystitis [Unknown]
  - Anaemia [Unknown]
  - Pruritus [Unknown]
  - Blood iron decreased [Unknown]
  - Adverse event [Unknown]

NARRATIVE: CASE EVENT DATE: 201802
